FAERS Safety Report 9019612 (Version 1)
Quarter: 2013Q1

REPORT INFORMATION
  Report Type: Spontaneous
  Country: US (occurrence: US)
  Receive Date: 20130118
  Receipt Date: 20130118
  Transmission Date: 20140127
  Serious: Yes (Hospitalization)
  Sender: FDA-Public Use
  Company Number: US-BAYER-2013-005092

PATIENT
  Age: 43 Year
  Sex: Female
  Weight: 140 kg

DRUGS (13)
  1. YAZ [Suspect]
     Indication: POLYCYSTIC OVARIES
  2. YASMIN [Suspect]
  3. OCELLA [Suspect]
  4. METOPROLOL [Concomitant]
     Dosage: 25 MG, DAILY
  5. LASIX [Concomitant]
     Dosage: 20 MG, DAILY
  6. XANAX [Concomitant]
     Dosage: 1 MG, AT BED TIME
  7. SYNTHROID [Concomitant]
     Dosage: 50 ?G, DAILY
  8. METFORMIN [Concomitant]
     Dosage: 1000 MG, BID
  9. SERTRALINE [Concomitant]
     Dosage: 100 MG, UNK
  10. ALBUTEROL [Concomitant]
  11. PREDNISONE [Concomitant]
  12. ENDOLAC [Concomitant]
     Dosage: 400 MG, UNK
  13. PERCOCET [Concomitant]

REACTIONS (2)
  - Pulmonary embolism [Recovered/Resolved]
  - Deep vein thrombosis [None]
